FAERS Safety Report 4281439-4 (Version None)
Quarter: 2004Q1

REPORT INFORMATION
  Report Type: 
  Country: None (occurrence: None)
  Receive Date: 20040112
  Receipt Date: 20030912
  Transmission Date: 20041129
  Serious: Yes (Other)
  Sender: FDA-Public Use
  Company Number: US-JNJFOC-20030903061

PATIENT
  Age: 65 Year
  Sex: Female
  Weight: 58.9676 kg

DRUGS (4)
  1. REOPRO [Suspect]
     Indication: MYOCARDIAL ISCHAEMIA
     Dosage: INTRAVENOUS
     Route: 042
     Dates: start: 20030908
  2. ASPIRIN [Concomitant]
  3. HEPARIN [Concomitant]
  4. PLAVIX [Concomitant]

REACTIONS (1)
  - GASTROINTESTINAL HAEMORRHAGE [None]
